FAERS Safety Report 17824985 (Version 1)
Quarter: 2020Q2

REPORT INFORMATION
  Report Type: Spontaneous
  Country: US (occurrence: US)
  Receive Date: 20200526
  Receipt Date: 20200526
  Transmission Date: 20200714
  Serious: Yes (Hospitalization)
  Sender: FDA-Public Use
  Company Number: None

PATIENT
  Age: 50 Year
  Sex: Female

DRUGS (3)
  1. CETIRIZNE [Concomitant]
  2. PREDNISONE. [Concomitant]
     Active Substance: PREDNISONE
  3. DOFETILIDE. [Suspect]
     Active Substance: DOFETILIDE
     Indication: ASTHMA
     Route: 048
     Dates: start: 20191224

REACTIONS (1)
  - Pneumonia [None]

NARRATIVE: CASE EVENT DATE: 20200511
